FAERS Safety Report 24050229 (Version 2)
Quarter: 2024Q3

REPORT INFORMATION
  Report Type: Spontaneous
  Country: AU (occurrence: AU)
  Receive Date: 20240704
  Receipt Date: 20240705
  Transmission Date: 20241016
  Serious: Yes (Other)
  Sender: CSL BEHRING
  Company Number: AU-BEH-2024174737

PATIENT
  Age: 55 Year
  Sex: Male

DRUGS (1)
  1. ALBUREX [Suspect]
     Active Substance: ALBUMIN HUMAN
     Route: 065

REACTIONS (3)
  - Product contamination [Unknown]
  - Product colour issue [Unknown]
  - Product with quality issue administered [Unknown]
